FAERS Safety Report 23857259 (Version 1)
Quarter: 2024Q2

REPORT INFORMATION
  Report Type: Spontaneous
  Country: EG (occurrence: EG)
  Receive Date: 20240515
  Receipt Date: 20240515
  Transmission Date: 20240716
  Serious: Yes (Hospitalization, Other)
  Sender: FDA-Public Use
  Company Number: EG-HIKMA PHARMACEUTICALS USA INC.-EG-H14001-24-03959

PATIENT
  Age: 45 Year
  Sex: Female
  Weight: 110 kg

DRUGS (6)
  1. CARBOPLATIN [Suspect]
     Active Substance: CARBOPLATIN
     Dosage: 500 MILLIGRAM, 3W, DILUTED IN 500 ML NORMAL SALINE, OVER ONE HOUR
     Route: 041
  2. CARBOPLATIN [Suspect]
     Active Substance: CARBOPLATIN
     Indication: Breast cancer
     Dosage: 600 MILLIGRAM, 3W, DILUTED IN 500 ML NORMAL SALINE, OVER ONE HOUR
     Route: 041
  3. CARBOPLATIN [Suspect]
     Active Substance: CARBOPLATIN
     Dosage: 600 MILLIGRAM, 3W, DILUTED IN 500 ML NORMAL SALINE, OVER ONE HOUR
     Route: 041
     Dates: start: 20240304
  4. DOCETAXEL [Suspect]
     Active Substance: DOCETAXEL\DOCETAXEL ANHYDROUS
     Dosage: 120 MILLIGRAM, 3W, DILUTED IN 500 ML NORMAL SALINE, OVER ONE HOUR
     Route: 041
  5. DOCETAXEL [Suspect]
     Active Substance: DOCETAXEL\DOCETAXEL ANHYDROUS
     Indication: Breast cancer
     Dosage: 150 MILLIGRAM, 3W, DILUTED IN 500 ML NORMAL SALINE, OVER ONE HOUR
     Route: 041
     Dates: start: 20240304
  6. PACLITAXEL [Suspect]
     Active Substance: PACLITAXEL
     Indication: Breast cancer
     Dosage: UNKNOWN, 3W
     Route: 065

REACTIONS (3)
  - Diarrhoea [Unknown]
  - Tachycardia [Unknown]
  - Electrolyte imbalance [Unknown]

NARRATIVE: CASE EVENT DATE: 20240325
